FAERS Safety Report 7518998-1 (Version None)
Quarter: 2011Q2

REPORT INFORMATION
  Report Type: 
  Country: None (occurrence: None)
  Receive Date: 20110602
  Receipt Date: 20110526
  Transmission Date: 20111010
  Serious: Yes (Other)
  Sender: FDA-Public Use
  Company Number: IE-US-EMD SERONO, INC.-230046J10IRL

PATIENT
  Sex: Female

DRUGS (2)
  1. REBIF [Suspect]
     Indication: RELAPSING-REMITTING MULTIPLE SCLEROSIS
     Dates: start: 20091127, end: 20110418
  2. REBIF [Suspect]
     Dates: start: 20110518

REACTIONS (10)
  - EAR INFECTION [None]
  - PHARYNGITIS [None]
  - INJECTION SITE ERYTHEMA [None]
  - KIDNEY INFECTION [None]
  - MIDDLE INSOMNIA [None]
  - LOWER RESPIRATORY TRACT INFECTION [None]
  - FEELING OF BODY TEMPERATURE CHANGE [None]
  - COUGH [None]
  - SENSATION OF HEAVINESS [None]
  - PAIN [None]
